FAERS Safety Report 10210607 (Version 2)
Quarter: 2014Q3

REPORT INFORMATION
  Report Type: Spontaneous
  Country: IT (occurrence: IT)
  Receive Date: 20140602
  Receipt Date: 20140916
  Transmission Date: 20150326
  Serious: Yes (Other)
  Sender: FDA-Public Use
  Company Number: IT-SA-2014SA066666

PATIENT
  Age: 85 Year
  Sex: Female

DRUGS (8)
  1. TAREG [Suspect]
     Active Substance: VALSARTAN
     Indication: HYPERTENSION
     Route: 048
  2. TORVAST [Concomitant]
     Active Substance: ATORVASTATIN
  3. LASIX [Suspect]
     Active Substance: FUROSEMIDE
     Indication: HYPERTENSION
     Route: 048
     Dates: start: 20090101, end: 20140515
  4. SEQUACOR [Concomitant]
     Active Substance: BISOPROLOL
  5. PANTORC [Concomitant]
     Active Substance: PANTOPRAZOLE SODIUM
  6. TAREG [Suspect]
     Active Substance: VALSARTAN
     Indication: HYPERTENSION
     Route: 048
     Dates: start: 20090101, end: 20140515
  7. KESTINE [Concomitant]
     Active Substance: EBASTINE
  8. CARDIOASPIRIN [Concomitant]
     Active Substance: ASPIRIN

REACTIONS (1)
  - Syncope [Recovering/Resolving]

NARRATIVE: CASE EVENT DATE: 20140515
